FAERS Safety Report 14425824 (Version 8)
Quarter: 2018Q3

REPORT INFORMATION
  Report Type: Spontaneous
  Country: FR (occurrence: FR)
  Receive Date: 20180123
  Receipt Date: 20180731
  Transmission Date: 20181010
  Serious: Yes (Hospitalization, Other)
  Sender: FDA-Public Use
  Company Number: PHHY2018FR009215

PATIENT
  Age: 79 Year
  Sex: Female
  Weight: 50 kg

DRUGS (5)
  1. LEXOMIL [Concomitant]
     Active Substance: BROMAZEPAM
     Indication: ANXIETY
     Dosage: 0.25 DF, QD
     Route: 048
     Dates: start: 2000
  2. TRAVATAN [Suspect]
     Active Substance: TRAVOPROST
     Indication: GLAUCOMA
     Dosage: 1 GTT, QD
     Route: 047
     Dates: start: 2008
  3. XALATAN [Suspect]
     Active Substance: LATANOPROST
     Indication: GLAUCOMA
     Dosage: 2 GTT, QD (IN EVENING)
     Route: 065
     Dates: start: 20080606, end: 20180410
  4. AZOPT [Suspect]
     Active Substance: BRINZOLAMIDE
     Indication: GLAUCOMA
     Dosage: 2 GTT, QD (IN EVENING)
     Route: 047
     Dates: start: 2016, end: 20180410
  5. AZOPT [Suspect]
     Active Substance: BRINZOLAMIDE
     Dosage: 2 GTT, UNK (2X/DAY IN THE MORNING AND EVENING)
     Route: 047
     Dates: start: 20080606, end: 20180313

REACTIONS (12)
  - Cough [Recovered/Resolved]
  - Pharyngitis [Not Recovered/Not Resolved]
  - Bronchospasm [Recovering/Resolving]
  - Dyspnoea [Recovered/Resolved]
  - Respiratory disorder [Not Recovered/Not Resolved]
  - Dysphagia [Recovering/Resolving]
  - Asphyxia [Not Recovered/Not Resolved]
  - Obstructive airways disorder [Unknown]
  - Increased bronchial secretion [Unknown]
  - Weight decreased [Not Recovered/Not Resolved]
  - Asthma [Recovering/Resolving]
  - Wheezing [Unknown]

NARRATIVE: CASE EVENT DATE: 201712
